FAERS Safety Report 20472334 (Version 1)
Quarter: 2022Q1

REPORT INFORMATION
  Report Type: Spontaneous
  Country: GB (occurrence: GB)
  Receive Date: 20220215
  Receipt Date: 20220215
  Transmission Date: 20220423
  Serious: Yes (Other)
  Sender: FDA-Public Use
  Company Number: GB-MHRA-TPP29110607C5457576YC1643621881228

PATIENT
  Age: 75 Year
  Sex: Female
  Weight: 98 kg

DRUGS (11)
  1. AMOXICILLIN [Suspect]
     Active Substance: AMOXICILLIN
     Indication: Product used for unknown indication
     Dosage: 500 MILLIGRAM, 3 TIMES A DAY (TAKE ONE 3 TIMES/DAY FOR 7DAYS.)
     Route: 065
     Dates: start: 20220126
  2. ATORVASTATIN [Concomitant]
     Active Substance: ATORVASTATIN
     Indication: Product used for unknown indication
     Dosage: 1 DOSAGE FORM, ONCE A DAY (TAKE ONE DAILY)
     Route: 065
     Dates: start: 20210811
  3. Cetraben [Concomitant]
     Indication: Product used for unknown indication
     Dosage: 4 DOSAGE FORM, ONCE A DAY (APPLY TO DRY SKIN UP TO 4 TIMES A DAY)
     Route: 065
     Dates: start: 20210811
  4. EDOXABAN [Concomitant]
     Active Substance: EDOXABAN
     Indication: Product used for unknown indication
     Dosage: 1 DOSAGE FORM, ONCE A DAY (TAKE ONE DAILY)
     Route: 065
     Dates: start: 20210811
  5. FLUCLOXACILLIN [Concomitant]
     Active Substance: FLUCLOXACILLIN
     Indication: Product used for unknown indication
     Dosage: 1 DOSAGE FORM, FOUR TIMES/DAY (TAKE ONE 4 TIMES/DAY FOR 7 DAYS)
     Route: 065
     Dates: start: 20211206, end: 20211213
  6. LANSOPRAZOLE [Concomitant]
     Active Substance: LANSOPRAZOLE
     Indication: Product used for unknown indication
     Dosage: 1 DOSAGE FORM, ONCE A DAY (TAKE ONE DAILY WHEN TAKING  PREDNISOLONE)
     Route: 065
     Dates: start: 20220131
  7. LETROZOLE [Concomitant]
     Active Substance: LETROZOLE
     Indication: Product used for unknown indication
     Dosage: 1 DOSAGE FORM, ONCE A DAY (TAKE ONE ONCE DAILY. CONSIDER STOPPING IN AUGUS...)
     Route: 065
     Dates: start: 20210811
  8. LEVOTHYROXINE [Concomitant]
     Active Substance: LEVOTHYROXINE
     Indication: Product used for unknown indication
     Dosage: 1 DOSAGE FORM, ONCE A DAY (TAKE ONE EACH MORNING)
     Route: 065
     Dates: start: 20210811
  9. LISINOPRIL [Concomitant]
     Active Substance: LISINOPRIL
     Indication: Product used for unknown indication
     Dosage: 1 DOSAGE FORM, ONCE A DAY (TAKE ONE DAILY)
     Route: 065
     Dates: start: 20210922
  10. METRONIDAZOLE [Concomitant]
     Active Substance: METRONIDAZOLE
     Indication: Product used for unknown indication
     Dosage: 1 DOSAGE FORM, TWO TIMES A DAY (TAKE ONE TABLET TWICE DAILY FOR 14 DAYS)
     Route: 065
     Dates: start: 20220104, end: 20220118
  11. PREDNISOLONE [Concomitant]
     Active Substance: PREDNISOLONE
     Indication: Product used for unknown indication
     Dosage: 6 DOSAGE FORM, ONCE A DAY (TAKE 6 (SIX) TABLETS EVERY MORNING AS A SINGLE...)
     Route: 065
     Dates: start: 20220131

REACTIONS (2)
  - Swelling face [Recovering/Resolving]
  - Pruritus [Recovering/Resolving]

NARRATIVE: CASE EVENT DATE: 20220126
